FAERS Safety Report 7339296-5 (Version None)
Quarter: 2011Q1

REPORT INFORMATION
  Report Type: 
  Country: None (occurrence: None)
  Receive Date: 20110308
  Receipt Date: 20110228
  Transmission Date: 20110831
  Serious: Yes (Other)
  Sender: FDA-Public Use
  Company Number: US-PFIZER INC-US-WYE-H18437610

PATIENT
  Sex: Female
  Weight: 73 kg

DRUGS (7)
  1. PREMPRO [Suspect]
     Indication: HORMONE REPLACEMENT THERAPY
     Dosage: NOT PROVIDED
     Route: 048
     Dates: start: 19830101
  2. KLONOPIN [Concomitant]
     Route: 065
  3. AVAPRO [Concomitant]
     Route: 065
  4. ZOLOFT [Concomitant]
     Route: 065
  5. SYNTHROID [Concomitant]
     Route: 065
  6. FUROSEMIDE [Concomitant]
     Route: 065
  7. ZOCOR [Concomitant]
     Route: 065

REACTIONS (2)
  - KNEE ARTHROPLASTY [None]
  - LACERATION [None]
